FAERS Safety Report 9704620 (Version 1)
Quarter: 2013Q4

REPORT INFORMATION
  Report Type: Spontaneous
  Country: US (occurrence: US)
  Receive Date: 20131122
  Receipt Date: 20131122
  Transmission Date: 20140711
  Serious: Yes (Hospitalization)
  Sender: FDA-Public Use
  Company Number: US-B.I. PHARMACEUTICALS,INC./RIDGEFIELD-2013-BI-36962BP

PATIENT
  Age: 57 Year
  Sex: Female
  Weight: 85 kg

DRUGS (7)
  1. COMBIVENT [Suspect]
     Indication: CHRONIC OBSTRUCTIVE PULMONARY DISEASE
     Dosage: DOSE PER APPLICATION: 20 MCG/ 100 MCG, DAILY DOSE: 80 MCG/ 400 MCG
     Route: 055
     Dates: start: 201307
  2. MIRAPEX [Suspect]
     Indication: RESTLESS LEGS SYNDROME
     Dosage: 0.125 MG
     Route: 048
     Dates: start: 2013
  3. TEMAZEPAM [Concomitant]
     Indication: SLEEP DISORDER
     Dosage: 30 MG
     Route: 048
  4. ESTROGEL [Concomitant]
     Dosage: DOSE PER APPLICATION: 0.06 %;
  5. AMLODIPINE BESYLATE [Concomitant]
     Indication: HYPERTENSION
     Dosage: 2.5 MG
     Route: 048
  6. ALPRAZOLAM [Concomitant]
     Indication: ANXIETY
     Dosage: 3 MG
     Route: 048
  7. PRISTIQ [Concomitant]
     Indication: PANIC ATTACK
     Dosage: 100 MG
     Route: 048

REACTIONS (5)
  - Pneumonia [Not Recovered/Not Resolved]
  - Tremor [Recovered/Resolved]
  - Pyrexia [Recovered/Resolved]
  - Cough [Not Recovered/Not Resolved]
  - Dyspnoea [Not Recovered/Not Resolved]
